FAERS Safety Report 9411866 (Version 1)
Quarter: 2013Q3

REPORT INFORMATION
  Report Type: Spontaneous
  Country: BR (occurrence: BR)
  Receive Date: 20130722
  Receipt Date: 20130722
  Transmission Date: 20140515
  Serious: Yes (Other)
  Sender: FDA-Public Use
  Company Number: PHHY2013BR076222

PATIENT
  Sex: Female
  Weight: 75 kg

DRUGS (6)
  1. INTERFERON BETA-1B [Suspect]
     Indication: HEPATITIS C
     Dosage: 180 MG ONCE IN THE WEEK, UNK
     Dates: start: 2011, end: 2012
  2. INTERFERON BETA-1B [Suspect]
     Indication: OFF LABEL USE
  3. CARBAMAZEPINE [Suspect]
     Indication: EPILEPSY
     Dosage: 400 MG, QD
  4. RIBAVIRIN [Suspect]
     Indication: HEPATITIS C
     Dosage: 1 DF, QD
     Dates: start: 2011, end: 2012
  5. FILGRASTIM [Suspect]
     Indication: HEPATITIS C
     Dosage: 300 MG, UNK
     Dates: start: 2011, end: 2012
  6. FENISTIL [Suspect]
     Dosage: 100 MG, QHS

REACTIONS (3)
  - Viral load [Unknown]
  - Platelet count decreased [Unknown]
  - Anaemia [Unknown]
